FAERS Safety Report 5146861-2 (Version None)
Quarter: 2006Q4

REPORT INFORMATION
  Report Type: 
  Country: None (occurrence: None)
  Receive Date: 20061109
  Receipt Date: 20061108
  Transmission Date: 20070319
  Serious: Yes (Hospitalization)
  Sender: FDA-Public Use
  Company Number: US-GLAXOSMITHKLINE-A0626718A

PATIENT
  Age: 80 Year
  Sex: Male

DRUGS (5)
  1. COREG [Suspect]
     Indication: VASCULAR BYPASS GRAFT
     Route: 048
     Dates: start: 20060701
  2. LIPITOR [Concomitant]
  3. DIOVAN HCT [Concomitant]
  4. CARBIDOPA AND LEVODOPA [Concomitant]
  5. CARTIA XT [Concomitant]

REACTIONS (4)
  - DEHYDRATION [None]
  - DYSPNOEA [None]
  - FATIGUE [None]
  - WEIGHT DECREASED [None]
